FAERS Safety Report 8194018-3 (Version None)
Quarter: 2012Q1

REPORT INFORMATION
  Report Type: 
  Country: None (occurrence: None)
  Receive Date: 20120308
  Receipt Date: 20120301
  Transmission Date: 20120608
  Serious: Yes (Hospitalization, Disabling, Other)
  Sender: FDA-Public Use
  Company Number: US-MERCK-1106USA01820

PATIENT
  Age: 53 Year
  Sex: Female

DRUGS (7)
  1. FOSAMAX [Suspect]
     Indication: OSTEOPOROSIS
     Route: 048
     Dates: start: 20010313, end: 20050811
  2. ALENDRONATE SODIUM [Suspect]
     Route: 065
  3. FOSAMAX [Suspect]
     Route: 048
     Dates: start: 20090820, end: 20091219
  4. FOSAMAX [Suspect]
     Indication: OSTEOPENIA
     Route: 048
     Dates: start: 20010313, end: 20050811
  5. FOSAMAX PLUS D [Suspect]
     Indication: OSTEOPOROSIS
     Route: 048
     Dates: start: 20051119, end: 20081222
  6. FOSAMAX [Suspect]
     Route: 048
     Dates: start: 20090820, end: 20091219
  7. FOSAMAX PLUS D [Suspect]
     Indication: OSTEOPENIA
     Route: 048
     Dates: start: 20051119, end: 20081222

REACTIONS (51)
  - BREAST CANCER [None]
  - GASTROOESOPHAGEAL REFLUX DISEASE [None]
  - PRESYNCOPE [None]
  - DEVICE RELATED INFECTION [None]
  - ARTHROPATHY [None]
  - DEPRESSION [None]
  - FEMUR FRACTURE [None]
  - POSTOPERATIVE WOUND INFECTION [None]
  - TACHYCARDIA [None]
  - FIBROMYALGIA [None]
  - BACK PAIN [None]
  - FOOT DEFORMITY [None]
  - VESSEL PERFORATION [None]
  - HAEMORRHAGIC ANAEMIA [None]
  - MIGRAINE [None]
  - MOOD SWINGS [None]
  - OSTEOARTHRITIS [None]
  - FRACTURE DISPLACEMENT [None]
  - BONE GRAFT [None]
  - FRACTURE NONUNION [None]
  - STRESS [None]
  - SCOLIOSIS [None]
  - RESTLESS LEGS SYNDROME [None]
  - PANIC ATTACK [None]
  - ARTHRALGIA [None]
  - HYPOAESTHESIA [None]
  - MYOFASCIAL PAIN SYNDROME [None]
  - INFECTION [None]
  - ADVERSE DRUG REACTION [None]
  - HAEMATOMA [None]
  - FOOT FRACTURE [None]
  - MUSCLE SPASMS [None]
  - PAIN IN EXTREMITY [None]
  - MITRAL VALVE PROLAPSE [None]
  - ANXIETY [None]
  - IMPAIRED HEALING [None]
  - DEVICE FAILURE [None]
  - SEROMA [None]
  - LOW TURNOVER OSTEOPATHY [None]
  - SPINAL OSTEOARTHRITIS [None]
  - POOR QUALITY SLEEP [None]
  - OBESITY [None]
  - THROMBOCYTOPENIA [None]
  - FALL [None]
  - GALLBLADDER DISORDER [None]
  - RHEUMATOID ARTHRITIS [None]
  - NERVE COMPRESSION [None]
  - FEELING JITTERY [None]
  - INTERVERTEBRAL DISC DEGENERATION [None]
  - MULTIPLE INJURIES [None]
  - DEVICE BREAKAGE [None]
